FAERS Safety Report 5840231-7 (Version None)
Quarter: 2008Q3

REPORT INFORMATION
  Report Type: 
  Country: None (occurrence: None)
  Receive Date: 20080807
  Receipt Date: 20080807
  Transmission Date: 20090109
  Serious: Yes (Hospitalization)
  Sender: FDA-Public Use
  Company Number: None

PATIENT
  Sex: Female
  Weight: 61 kg

DRUGS (9)
  1. CYCLOPHOSPHAMIDE [Suspect]
     Dosage: 1280 MG
  2. CYTARABINE [Suspect]
     Dosage: 40 MG
  3. DEXAMETHASONE [Suspect]
     Dosage: 64 MG
  4. DOXORUBICIN HYDROCHLORIDE [Suspect]
     Dosage: 40 MG
  5. G-CSF (FILGRASTIM, AMGEN) [Suspect]
     Dosage: 2400 MCG
  6. LEUCOVORIN CALCIUM [Suspect]
     Dosage: 8980 MG
  7. METHOTREXATE [Suspect]
     Dosage: 2415 MG
  8. RITUXIMAB (MOAB C2B8 ANTI CD20, CHIMERIC) [Suspect]
     Dosage: 600 MG
  9. VINCRISTINE SULFATE [Suspect]
     Dosage: 2 MG

REACTIONS (3)
  - BLOOD CREATININE INCREASED [None]
  - NEPHROLITHIASIS [None]
  - OEDEMA PERIPHERAL [None]
